FAERS Safety Report 7589593-3 (Version None)
Quarter: 2011Q3

REPORT INFORMATION
  Report Type: 
  Country: None (occurrence: None)
  Receive Date: 20110705
  Receipt Date: 20110622
  Transmission Date: 20111222
  Serious: Yes (Hospitalization)
  Sender: FDA-Public Use
  Company Number: US-SANOFI-AVENTIS-2011SA040860

PATIENT
  Age: 68 Year
  Sex: Female
  Weight: 99.7 kg

DRUGS (9)
  1. FOLIC ACID [Concomitant]
     Route: 048
  2. COUMADIN [Concomitant]
     Dosage: 5 MG MONDAY, WEDNESDAY, FRIDAY AND 2.5 MG ALL OTHER DAYS
     Route: 048
  3. DETROL [Concomitant]
  4. DILAUDID [Suspect]
     Dosage: 1 MG 6 TIMES A DAYS AS NEEDED
     Route: 048
     Dates: start: 20110201
  5. LASIX [Concomitant]
     Route: 048
  6. METOCLOPRAMIDE [Concomitant]
     Route: 048
  7. PREVACID [Concomitant]
     Route: 048
  8. PLAVIX [Suspect]
     Route: 048
  9. LOVENOX [Suspect]
     Route: 058
     Dates: start: 20000101

REACTIONS (13)
  - NAUSEA [None]
  - ILEUS [None]
  - SMALL INTESTINAL OBSTRUCTION [None]
  - BLOOD PRESSURE INCREASED [None]
  - ASPARTATE AMINOTRANSFERASE INCREASED [None]
  - HAEMATOCHEZIA [None]
  - ABDOMINAL DISTENSION [None]
  - RESPIRATORY RATE INCREASED [None]
  - BLOOD GLUCOSE INCREASED [None]
  - CONSTIPATION [None]
  - DECREASED APPETITE [None]
  - ABDOMINAL PAIN [None]
  - HAEMORRHOIDS [None]
